FAERS Safety Report 9793161 (Version 1)
Quarter: 2014Q1

REPORT INFORMATION
  Report Type: Report from Study
  Country: KR (occurrence: KR)
  Receive Date: 20140102
  Receipt Date: 20140102
  Transmission Date: 20141002
  Serious: Yes (Death)
  Sender: FDA-Public Use
  Company Number: KR-SA-2013SA135571

PATIENT
  Sex: 0

DRUGS (7)
  1. FLUDARABINE PHOSPHATE [Suspect]
     Indication: BONE MARROW CONDITIONING REGIMEN
     Route: 065
  2. ANTI-THYMOCYTE GLOBULIN (RABBIT) [Suspect]
     Indication: BONE MARROW CONDITIONING REGIMEN
     Route: 065
  3. ANTI-THYMOCYTE GLOBULIN (RABBIT) [Suspect]
     Indication: IMMUNOSUPPRESSANT DRUG THERAPY
     Route: 065
  4. ANTI-THYMOCYTE GLOBULIN (RABBIT) [Suspect]
     Indication: BONE MARROW CONDITIONING REGIMEN
     Route: 065
  5. ANTI-THYMOCYTE GLOBULIN (RABBIT) [Suspect]
     Indication: IMMUNOSUPPRESSANT DRUG THERAPY
     Route: 065
  6. CYCLOPHOSPHAMIDE [Suspect]
     Indication: BONE MARROW CONDITIONING REGIMEN
     Route: 065
  7. CICLOSPORIN [Suspect]
     Indication: IMMUNOSUPPRESSANT DRUG THERAPY
     Route: 065

REACTIONS (1)
  - Death [Fatal]
